FAERS Safety Report 5404160-5 (Version None)
Quarter: 2007Q3

REPORT INFORMATION
  Report Type: 
  Country: None (occurrence: None)
  Receive Date: 20070731
  Receipt Date: 20070720
  Transmission Date: 20080115
  Serious: Yes (Other)
  Sender: FDA-Public Use
  Company Number: 236096K07USA

PATIENT
  Age: 31 Year
  Sex: Female

DRUGS (5)
  1. REBIF [Suspect]
     Indication: MULTIPLE SCLEROSIS
     Dosage: 22 MCG, 3 IN 1 WEEKS, SUBCUTANEOUS
     Route: 058
     Dates: start: 20050524
  2. BACLOFEN [Concomitant]
  3. XANAX [Concomitant]
  4. UROXATRAL [Concomitant]
  5. ANTIVERT [Concomitant]

REACTIONS (5)
  - ABDOMINAL PAIN [None]
  - COELIAC DISEASE [None]
  - DIARRHOEA [None]
  - MALAISE [None]
  - PAIN [None]
